FAERS Safety Report 19591367 (Version 2)
Quarter: 2021Q4

REPORT INFORMATION
  Report Type: Report from Study
  Country: IT (occurrence: IT)
  Receive Date: 20210721
  Receipt Date: 20211020
  Transmission Date: 20220303
  Serious: Yes (Hospitalization, Other)
  Sender: FDA-Public Use
  Company Number: IT-SHIRE-IT202018808

PATIENT
  Age: 51 Year
  Sex: Male
  Weight: 72 kg

DRUGS (14)
  1. TEDUGLUTIDE [Suspect]
     Active Substance: TEDUGLUTIDE
     Indication: Short-bowel syndrome
     Dosage: 5 MILLIGRAM (0.05 MG/KG), 1X/DAY:QD
     Route: 058
     Dates: start: 20190305
  2. TEDUGLUTIDE [Suspect]
     Active Substance: TEDUGLUTIDE
     Indication: Short-bowel syndrome
     Dosage: 5 MILLIGRAM (0.05 MG/KG), 1X/DAY:QD
     Route: 058
     Dates: start: 20190305
  3. TEDUGLUTIDE [Suspect]
     Active Substance: TEDUGLUTIDE
     Indication: Short-bowel syndrome
     Dosage: 5 MILLIGRAM (0.05 MG/KG), 1X/DAY:QD
     Route: 058
     Dates: start: 20190305
  4. TEDUGLUTIDE [Suspect]
     Active Substance: TEDUGLUTIDE
     Indication: Short-bowel syndrome
     Dosage: 5 MILLIGRAM (0.05 MG/KG), 1X/DAY:QD
     Route: 058
     Dates: start: 20190305
  5. TEDUGLUTIDE [Suspect]
     Active Substance: TEDUGLUTIDE
     Dosage: 5 MILLIGRAM (0.06MG/KG), QD
     Route: 065
     Dates: start: 19990305, end: 20001112
  6. TEDUGLUTIDE [Suspect]
     Active Substance: TEDUGLUTIDE
     Dosage: 5 MILLIGRAM (0.06MG/KG), QD
     Route: 065
     Dates: start: 19990305, end: 20001112
  7. TEDUGLUTIDE [Suspect]
     Active Substance: TEDUGLUTIDE
     Dosage: 5 MILLIGRAM (0.06MG/KG), QD
     Route: 065
     Dates: start: 19990305, end: 20001112
  8. TEDUGLUTIDE [Suspect]
     Active Substance: TEDUGLUTIDE
     Dosage: 5 MILLIGRAM (0.06MG/KG), QD
     Route: 065
     Dates: start: 19990305, end: 20001112
  9. OLMESARTAN [Concomitant]
     Active Substance: OLMESARTAN
     Indication: Product used for unknown indication
  10. AMINO ACIDS\DEXTROSE\ELECTROLYTES NOS\SOYBEAN OIL [Concomitant]
     Active Substance: AMINO ACIDS\DEXTROSE\ELECTROLYTES NOS\SOYBEAN OIL
     Indication: Product used for unknown indication
  11. OROTRE [Concomitant]
     Indication: Product used for unknown indication
     Dosage: 1 DOSAGE FORM, BID
     Route: 048
     Dates: start: 2018
  12. PLAVIX [Concomitant]
     Active Substance: CLOPIDOGREL BISULFATE
     Dosage: 1.0 DOSAGE FORM, QD
     Route: 048
  13. ARIXTRA [Concomitant]
     Active Substance: FONDAPARINUX SODIUM
     Indication: Deep vein thrombosis
     Dosage: 1.0 DOSAGE FORM, QD
     Route: 058
     Dates: start: 20200426
  14. MAGNESIUM CITRATE [Concomitant]
     Active Substance: MAGNESIUM CITRATE
     Indication: Nephrolithiasis
     Dosage: 1.0 DOSAGE FORM, QD
     Route: 048
     Dates: start: 2018

REACTIONS (3)
  - Vascular device occlusion [Not Recovered/Not Resolved]
  - Deep vein thrombosis [Recovered/Resolved]
  - Device malfunction [Recovered/Resolved]

NARRATIVE: CASE EVENT DATE: 20200401
